FAERS Safety Report 7579216-1 (Version None)
Quarter: 2011Q2

REPORT INFORMATION
  Report Type: 
  Country: None (occurrence: None)
  Receive Date: 20110628
  Receipt Date: 20110616
  Transmission Date: 20111010
  Serious: Yes (Hospitalization, Disabling, Other)
  Sender: FDA-Public Use
  Company Number: GB-ELI_LILLY_AND_COMPANY-GB201106004536

PATIENT
  Age: 86 Year
  Sex: Male

DRUGS (11)
  1. DOCUSATE [Concomitant]
     Dosage: 100 MG, BID
  2. LITHIUM CARBONATE [Concomitant]
     Dosage: 200 MG, QD
  3. CLOPIDOGREL [Concomitant]
     Dosage: 75 MG, QD
  4. METOPROLOL TARTRATE [Concomitant]
     Dosage: 25 MG, TID
  5. OLANZAPINE [Suspect]
     Indication: BIPOLAR DISORDER
     Dosage: 7.5 MG, UNK
     Route: 048
     Dates: start: 20090514
  6. ASPIRIN [Concomitant]
     Dosage: 75 MG, QD
  7. BUMETANIDE [Concomitant]
     Dosage: 2 MG, QD
  8. ZOPLICONE [Concomitant]
     Dosage: 3.75 MG, QD
  9. FOLIC ACID [Concomitant]
     Dosage: 5 MG, QD
  10. RAMIPRIL [Concomitant]
     Dosage: 1.25 MG, QD
  11. SENNA [Concomitant]
     Dosage: 15 MG, QD

REACTIONS (3)
  - SALIVARY HYPERSECRETION [None]
  - ELEVATED MOOD [None]
  - DYSARTHRIA [None]
